FAERS Safety Report 5794495-9 (Version None)
Quarter: 2008Q2

REPORT INFORMATION
  Report Type: 
  Country: None (occurrence: None)
  Receive Date: 20080630
  Receipt Date: 20080620
  Transmission Date: 20081010
  Serious: Yes (Death)
  Sender: FDA-Public Use
  Company Number: JP-ELI_LILLY_AND_COMPANY-JP200805005771

PATIENT
  Sex: Male
  Weight: 32.8 kg

DRUGS (8)
  1. ZYPREXA [Suspect]
     Indication: SCHIZOPHRENIA
     Dosage: 2.5 MG, DAILY (1/D)
     Route: 048
     Dates: start: 20080521
  2. ISEPACIN [Concomitant]
     Indication: PNEUMONIA ASPIRATION
     Dosage: 1 D/F, DAILY (1/D)
     Route: 042
     Dates: start: 20080513
  3. NEOPHYLLIN [Concomitant]
     Indication: PNEUMONIA ASPIRATION
     Dosage: 1 D/F, DAILY (1/D)
     Route: 042
     Dates: start: 20080503
  4. PRIMPERAN /00041901/ [Concomitant]
     Indication: PROPHYLAXIS
     Dosage: 1 D/F, DAILY (1/D)
     Route: 042
     Dates: start: 20080509
  5. GAMMALON [Concomitant]
     Indication: PNEUMONIA ASPIRATION
     Dosage: 1 D/F, DAILY (1/D)
     Route: 042
     Dates: start: 20080414
  6. AMINO ACIDS/CARBOHYDRATES/MINERALS/VITAMINS, [Concomitant]
     Dosage: 930 ML, 2/D
     Route: 042
     Dates: start: 20080509
  7. ELEMENMIC [Concomitant]
     Dosage: 1 D/F, DAILY (1/D)
     Route: 042
     Dates: start: 20080509
  8. SODIUM CHLORIDE 0.9% [Concomitant]
     Dosage: 1 D/F, DAILY (1/D)
     Route: 042
     Dates: start: 20080509

REACTIONS (2)
  - PNEUMONIA ASPIRATION [None]
  - PYREXIA [None]
